FAERS Safety Report 8058225-2 (Version None)
Quarter: 2012Q1

REPORT INFORMATION
  Report Type: 
  Country: None (occurrence: None)
  Receive Date: 20120111
  Receipt Date: 20120103
  Transmission Date: 20120608
  Serious: Yes (Disabling)
  Sender: FDA-Public Use
  Company Number: 2012SP000535

PATIENT
  Age: 61 Year
  Sex: Male

DRUGS (10)
  1. REBETOL [Suspect]
     Indication: HEPATITIS C
  2. REBETOL [Suspect]
     Indication: HEPATIC CIRRHOSIS
  3. PRINZIDE [Concomitant]
  4. VICTRELIS [Suspect]
     Indication: HEPATITIS C
     Dosage: 800 MG;TID;PO
     Route: 048
     Dates: end: 20111217
  5. VICTRELIS [Suspect]
     Indication: HEPATIC CIRRHOSIS
     Dosage: 800 MG;TID;PO
     Route: 048
     Dates: end: 20111217
  6. PANTOPRAZOLE [Concomitant]
  7. PEG-INTRON [Suspect]
     Indication: HEPATIC CIRRHOSIS
  8. PEG-INTRON [Suspect]
     Indication: HEPATITIS C
  9. LISINOPRIL-RATIOPHARM [Concomitant]
  10. NORMACOL [Concomitant]

REACTIONS (1)
  - CHRONIC MYELOID LEUKAEMIA [None]
